FAERS Safety Report 24304619 (Version 1)
Quarter: 2024Q3

REPORT INFORMATION
  Report Type: Other
  Country: US (occurrence: US)
  Receive Date: 20240910
  Receipt Date: 20240910
  Transmission Date: 20241016
  Serious: No
  Sender: SIGMA TAU
  Company Number: US-LEADIANT GMBH-2023STPI000412

PATIENT
  Sex: Female

DRUGS (3)
  1. MATULANE [Suspect]
     Active Substance: PROCARBAZINE HYDROCHLORIDE
     Indication: Non-Hodgkin^s lymphoma
     Dosage: 50 MILLIGRAMS, 3 CAPSULES (150MG TOTAL), EVERY NIGHT ON DAYS 2 TO 8 OF ODD CHEMOTHERAPY CYCLES
     Route: 048
     Dates: start: 20231004
  2. DALTEPARIN [Concomitant]
     Active Substance: DALTEPARIN
     Indication: Thrombosis prophylaxis
     Dosage: UNK
  3. ACYCLOVIR [Concomitant]
     Active Substance: ACYCLOVIR
     Indication: Infection
     Dosage: UNK

REACTIONS (4)
  - Anaemia [Unknown]
  - Insomnia [Unknown]
  - Constipation [Unknown]
  - Mucosal inflammation [Unknown]
